FAERS Safety Report 8851064 (Version 1)
Quarter: 2012Q4

REPORT INFORMATION
  Report Type: 
  Country: AU (occurrence: AU)
  Receive Date: 20121019
  Receipt Date: 20121019
  Transmission Date: 20130627
  Serious: Yes (Other)
  Sender: FDA-Public Use
  Company Number: AU-ELI_LILLY_AND_COMPANY-AU201210004548

PATIENT
  Sex: Female

DRUGS (1)
  1. FORTEO [Suspect]
     Indication: PELVIC FRACTURE
     Dosage: UNK
     Dates: start: 201208

REACTIONS (3)
  - Gamma-glutamyltransferase increased [Unknown]
  - Blood alkaline phosphatase increased [Unknown]
  - Off label use [Unknown]
